FAERS Safety Report 10151653 (Version 1)
Quarter: 2014Q2

REPORT INFORMATION
  Report Type: Report from Study
  Country: US (occurrence: US)
  Receive Date: 20140505
  Receipt Date: 20140505
  Transmission Date: 20141212
  Serious: Yes (Other)
  Sender: FDA-Public Use
  Company Number: US-ROCHE-1392636

PATIENT
  Sex: 0

DRUGS (3)
  1. RITUXIMAB [Suspect]
     Indication: WALDENSTROM^S MACROGLOBULINAEMIA
     Dosage: ON DAY 11
     Route: 065
  2. BORTEZOMIB [Suspect]
     Indication: WALDENSTROM^S MACROGLOBULINAEMIA
     Route: 042
  3. DEXAMETHASONE [Suspect]
     Indication: WALDENSTROM^S MACROGLOBULINAEMIA
     Dosage: ON DAYS 1, 4, 8, AND 11.
     Route: 065

REACTIONS (10)
  - Pneumonia [Unknown]
  - Arrhythmia [Unknown]
  - Neutropenic infection [Unknown]
  - Neutropenia [Unknown]
  - Anaemia [Unknown]
  - Hypotension [Unknown]
  - Myopathy [Unknown]
  - Neuropathy peripheral [Unknown]
  - Thrombocytopenia [Unknown]
  - Hyperviscosity syndrome [Unknown]
